FAERS Safety Report 21280982 (Version 1)
Quarter: 2022Q3

REPORT INFORMATION
  Report Type: Report from Study
  Country: CA (occurrence: CA)
  Receive Date: 20220901
  Receipt Date: 20220901
  Transmission Date: 20221027
  Serious: Yes (Death, Other)
  Sender: FDA-Public Use
  Company Number: CA-BRISTOL-MYERS SQUIBB COMPANY-2022-098495

PATIENT
  Age: 51 Year
  Sex: Male

DRUGS (3)
  1. OPDIVO [Suspect]
     Active Substance: NIVOLUMAB
     Indication: Peritoneal neoplasm
     Dosage: Q2WKS
     Route: 042
     Dates: start: 20211013
  2. OPDIVO [Suspect]
     Active Substance: NIVOLUMAB
     Route: 065
  3. YERVOY [Suspect]
     Active Substance: IPILIMUMAB
     Indication: Peritoneal neoplasm
     Dosage: Q6WKS
     Route: 042
     Dates: start: 20211013

REACTIONS (2)
  - Death [Fatal]
  - Intentional product use issue [Unknown]
